FAERS Safety Report 10263822 (Version 1)
Quarter: 2014Q2

REPORT INFORMATION
  Report Type: Spontaneous
  Country: GB (occurrence: GB)
  Receive Date: 20140627
  Receipt Date: 20140627
  Transmission Date: 20141212
  Serious: Yes (Hospitalization)
  Sender: FDA-Public Use
  Company Number: GB-ROCHE-1425154

PATIENT
  Age: 27 Year
  Sex: Female
  Weight: 96 kg

DRUGS (4)
  1. XOLAIR [Suspect]
     Indication: ASTHMA
     Route: 058
  2. FLUTICASONE [Concomitant]
     Route: 065
  3. SALMETEROL [Concomitant]
     Route: 065
  4. SALBUTAMOL [Concomitant]

REACTIONS (4)
  - Peak expiratory flow rate decreased [Recovered/Resolved]
  - Asthma [Unknown]
  - Anxiety [Unknown]
  - Maternal exposure during pregnancy [Unknown]
